FAERS Safety Report 6048359-6 (Version None)
Quarter: 2009Q1

REPORT INFORMATION
  Report Type: 
  Country: None (occurrence: None)
  Receive Date: 20090123
  Receipt Date: 20090121
  Transmission Date: 20090719
  Serious: Yes (Other)
  Sender: FDA-Public Use
  Company Number: A0701121B

PATIENT
  Sex: Female
  Weight: 3.1 kg

DRUGS (5)
  1. ALLI [Suspect]
     Dates: start: 20070701, end: 20071228
  2. ADVAIR DISKUS 100/50 [Suspect]
     Indication: ASTHMA
     Dosage: 1PUFF TWICE PER DAY
  3. ALBUTEROL [Suspect]
     Indication: ASTHMA
  4. NASACOR [Concomitant]
     Indication: ASTHMA
     Dosage: 1PUFF TWICE PER DAY
  5. ORTHO TRI-CYCLEN LO [Concomitant]
     Indication: CONTRACEPTION

REACTIONS (2)
  - DRUG EXPOSURE DURING PREGNANCY [None]
  - HYPERBILIRUBINAEMIA NEONATAL [None]
